FAERS Safety Report 14943825 (Version 2)
Quarter: 2018Q3

REPORT INFORMATION
  Report Type: Spontaneous
  Country: IT (occurrence: IT)
  Receive Date: 20180528
  Receipt Date: 20180910
  Transmission Date: 20181010
  Serious: Yes (Hospitalization)
  Sender: FDA-Public Use
  Company Number: IT-TEVA-2018-IT-895412

PATIENT
  Age: 57 Year
  Sex: Female
  Weight: 78 kg

DRUGS (5)
  1. ATORVASTATIN [Concomitant]
     Active Substance: ATORVASTATIN
     Indication: HYPERCHOLESTEROLAEMIA
     Route: 048
  2. OLMESARTAN MEDOXOMIL. [Suspect]
     Active Substance: OLMESARTAN MEDOXOMIL
     Indication: HYPERTENSION
     Dosage: 45 MILLIGRAM DAILY;
     Route: 048
     Dates: end: 20170705
  3. OLPREZIDE [Interacting]
     Active Substance: HYDROCHLOROTHIAZIDE\OLMESARTAN MEDOXOMIL
     Indication: HYPERTENSION
     Dosage: 45 MILLIGRAM DAILY;
     Route: 048
     Dates: end: 20170705
  4. METFORMIN HYDROCHLORIDE EXTENDED RELEASE TABLET 500MG AND 1000MG [Suspect]
     Active Substance: METFORMIN HYDROCHLORIDE
     Indication: TYPE 2 DIABETES MELLITUS
     Dosage: 2000 MILLIGRAM DAILY;
     Route: 048
     Dates: end: 20170705
  5. FORXIGA [Interacting]
     Active Substance: DAPAGLIFLOZIN
     Indication: TYPE 2 DIABETES MELLITUS
     Dosage: 10 MILLIGRAM DAILY;
     Route: 048
     Dates: start: 20170601, end: 20170705

REACTIONS (3)
  - Anuria [Recovered/Resolved]
  - Drug interaction [Unknown]
  - Acute kidney injury [Recovered/Resolved]

NARRATIVE: CASE EVENT DATE: 20170708
